FAERS Safety Report 16362775 (Version 7)
Quarter: 2020Q2

REPORT INFORMATION
  Report Type: Spontaneous
  Country: FR (occurrence: FR)
  Receive Date: 20190528
  Receipt Date: 20200611
  Transmission Date: 20200713
  Serious: Yes (Hospitalization, Disabling, Other)
  Sender: FDA-Public Use
  Company Number: FR-JAZZ-2019-FR-007259

PATIENT

DRUGS (11)
  1. XYREM [Suspect]
     Active Substance: SODIUM OXYBATE
     Dosage: 5 G, BID
     Route: 048
     Dates: start: 201412, end: 201412
  2. XYREM [Suspect]
     Active Substance: SODIUM OXYBATE
     Dosage: UNK
     Route: 048
     Dates: start: 201412, end: 201412
  3. GARDASIL [Suspect]
     Active Substance: HUMAN PAPILLOMAVIRUS QUADRIVALENT (TYPES 6, 11, 16, AND 18) VACCINE, RECOMBINANT
     Indication: IMMUNISATION
     Dosage: UNK
     Dates: start: 20110522, end: 20110522
  4. NEISVAC-C [Concomitant]
     Active Substance: MENINGOCOCCAL POLYSACCHARIDE VACCINE C
     Dosage: UNK
     Dates: start: 20110618, end: 20110618
  5. XYREM [Suspect]
     Active Substance: SODIUM OXYBATE
     Dosage: 2.25 G, BID
     Route: 048
  6. XYREM [Suspect]
     Active Substance: SODIUM OXYBATE
     Dosage: 5 G, BID
     Route: 048
     Dates: start: 201412, end: 201412
  7. XYREM [Suspect]
     Active Substance: SODIUM OXYBATE
     Dosage: UNK
     Route: 048
     Dates: start: 2014, end: 2014
  8. GARDASIL [Suspect]
     Active Substance: HUMAN PAPILLOMAVIRUS QUADRIVALENT (TYPES 6, 11, 16, AND 18) VACCINE, RECOMBINANT
     Dosage: UNK
     Dates: start: 20110829, end: 20110829
  9. XYREM [Suspect]
     Active Substance: SODIUM OXYBATE
     Indication: PRODUCT USED FOR UNKNOWN INDICATION
     Dosage: UNK
     Route: 048
     Dates: start: 20110301, end: 20110301
  10. XYREM [Suspect]
     Active Substance: SODIUM OXYBATE
     Dosage: 3.75 G, BID
     Route: 048
     Dates: start: 201412, end: 201412
  11. XYREM [Suspect]
     Active Substance: SODIUM OXYBATE
     Dosage: 4.5 G, BID
     Route: 048

REACTIONS (73)
  - Lumbar puncture [Unknown]
  - Systemic lupus erythematosus [Unknown]
  - Movement disorder [Not Recovered/Not Resolved]
  - Urinary tract infection [Unknown]
  - Tachycardia [Unknown]
  - Photosensitivity reaction [Unknown]
  - Vitamin D deficiency [Unknown]
  - Gait disturbance [Unknown]
  - Malnutrition [Unknown]
  - Pain in extremity [Unknown]
  - Feeling abnormal [Unknown]
  - Cataplexy [Not Recovered/Not Resolved]
  - Antinuclear antibody increased [Unknown]
  - Neurodegenerative disorder [Unknown]
  - Epilepsy [Unknown]
  - Paraparesis [Not Recovered/Not Resolved]
  - Mood altered [Unknown]
  - Hypogammaglobulinaemia [Unknown]
  - Body temperature fluctuation [Unknown]
  - Back pain [Unknown]
  - Constipation [Unknown]
  - Depression [Not Recovered/Not Resolved]
  - Blood pressure decreased [Unknown]
  - Arthralgia [Recovering/Resolving]
  - Abdominal pain upper [Unknown]
  - Prescribed overdose [Unknown]
  - Pyrexia [Unknown]
  - Haemorrhage [Unknown]
  - Myelopathy [Unknown]
  - Dyspepsia [Unknown]
  - Vision blurred [Unknown]
  - Enuresis [Recovering/Resolving]
  - Myelitis [Unknown]
  - Ligament sprain [Unknown]
  - Heart rate increased [Unknown]
  - Loss of consciousness [Unknown]
  - Amenorrhoea [Not Recovered/Not Resolved]
  - Liver disorder [Unknown]
  - Hypothermia [Unknown]
  - Angiotensin converting enzyme increased [Unknown]
  - Hypoglycaemia [Unknown]
  - Tendonitis [Unknown]
  - Amnesia [Unknown]
  - Nausea [Unknown]
  - Visual impairment [Unknown]
  - Menstrual disorder [Not Recovered/Not Resolved]
  - Quadriplegia [Not Recovered/Not Resolved]
  - Nervous system disorder [Not Recovered/Not Resolved]
  - Leukocyturia [Unknown]
  - Hiccups [Unknown]
  - Ovarian cyst [Recovered/Resolved]
  - Rheumatoid arthritis [Unknown]
  - Vitamin B12 abnormal [Unknown]
  - Hyperhidrosis [Unknown]
  - Narcolepsy [Not Recovered/Not Resolved]
  - Weight decreased [Unknown]
  - Seasonal allergy [Unknown]
  - C-telopeptide increased [Unknown]
  - Erythema [Unknown]
  - Hyperglycaemia [Unknown]
  - Dyspnoea exertional [Unknown]
  - Asthenia [Not Recovered/Not Resolved]
  - Hypoaesthesia [Unknown]
  - Myalgia [Unknown]
  - Raynaud^s phenomenon [Unknown]
  - Appetite disorder [Recovered/Resolved]
  - Oculogyric crisis [Unknown]
  - Skin wound [Unknown]
  - Vitamin B1 increased [Unknown]
  - Tinnitus [Unknown]
  - Disturbance in attention [Not Recovered/Not Resolved]
  - Headache [Unknown]
  - Decreased appetite [Unknown]
